FAERS Safety Report 17263865 (Version 2)
Quarter: 2020Q1

REPORT INFORMATION
  Report Type: Spontaneous
  Country: US (occurrence: US)
  Receive Date: 20200113
  Receipt Date: 20200328
  Transmission Date: 20200409
  Serious: No
  Sender: FDA-Public Use
  Company Number: NVSC2020US006088

PATIENT

DRUGS (2)
  1. TAXOTERE [Suspect]
     Active Substance: DOCETAXEL
     Indication: PRODUCT USED FOR UNKNOWN INDICATION
     Dosage: UNK
     Route: 065
     Dates: start: 20111001, end: 20120117
  2. DOCETAXEL. [Suspect]
     Active Substance: DOCETAXEL
     Indication: PRODUCT USED FOR UNKNOWN INDICATION
     Dosage: UNK
     Route: 065
     Dates: start: 20111001, end: 20120117

REACTIONS (8)
  - Anhedonia [Unknown]
  - Injury [Not Recovered/Not Resolved]
  - Pain [Unknown]
  - Anxiety [Unknown]
  - Deformity [Not Recovered/Not Resolved]
  - Emotional distress [Unknown]
  - Discomfort [Unknown]
  - Alopecia [Not Recovered/Not Resolved]

NARRATIVE: CASE EVENT DATE: 201207
